FAERS Safety Report 15662670 (Version 3)
Quarter: 2019Q3

REPORT INFORMATION
  Report Type: Spontaneous
  Country: US (occurrence: US)
  Receive Date: 20181127
  Receipt Date: 20190812
  Transmission Date: 20191004
  Serious: Yes (Other)
  Sender: FDA-Public Use
  Company Number: US-SA-2018SA158164

PATIENT
  Age: 63 Year
  Sex: Female
  Weight: 65 kg

DRUGS (7)
  1. VENLAFAXINE [Concomitant]
     Active Substance: VENLAFAXINE HYDROCHLORIDE
     Indication: BREAST CANCER FEMALE
     Dosage: UNK
     Dates: start: 2000
  2. BENAZEPRIL AND HYDROCHLOROTHIAZIDE [Concomitant]
     Active Substance: BENAZEPRIL HYDROCHLORIDE\HYDROCHLOROTHIAZIDE
     Indication: BREAST CANCER FEMALE
     Dosage: UNK
     Dates: start: 2000
  3. DOCETAXEL. [Suspect]
     Active Substance: DOCETAXEL
     Dosage: EVERY 2 WEEKS
     Route: 042
     Dates: start: 20140331, end: 20140331
  4. DILTIAZEM. [Concomitant]
     Active Substance: DILTIAZEM
     Indication: BREAST CANCER FEMALE
     Dosage: UNK
     Dates: start: 2000
  5. DOXORUBICIN [Concomitant]
     Active Substance: DOXORUBICIN
     Indication: BREAST CANCER FEMALE
     Dosage: UNK UNK, UNK
  6. DOCETAXEL. [Suspect]
     Active Substance: DOCETAXEL
     Indication: BREAST CANCER FEMALE
     Dosage: UNK, QOW
     Route: 042
     Dates: start: 20140106, end: 20140106
  7. PRAVASTATIN. [Concomitant]
     Active Substance: PRAVASTATIN
     Indication: BREAST CANCER FEMALE
     Dosage: UNK
     Dates: start: 2009

REACTIONS (2)
  - Alopecia [Recovering/Resolving]
  - Psychological trauma [Unknown]

NARRATIVE: CASE EVENT DATE: 20140901
